FAERS Safety Report 9565861 (Version 1)
Quarter: 2013Q3

REPORT INFORMATION
  Report Type: Spontaneous
  Country: US (occurrence: US)
  Receive Date: 20130930
  Receipt Date: 20130930
  Transmission Date: 20140515
  Serious: No
  Sender: FDA-Public Use
  Company Number: US-TEVA-435151USA

PATIENT
  Age: 32 Year
  Sex: Female
  Weight: 49.94 kg

DRUGS (5)
  1. PLAN B ONE-STEP [Suspect]
     Indication: POST COITAL CONTRACEPTION
     Dosage: 1.5 MILLIGRAM DAILY;
     Route: 048
     Dates: start: 20130915, end: 20130915
  2. ORTHO TRI-CYCLEN [Suspect]
     Indication: CONTRACEPTION
  3. WOMEN^S PRENATAL VITAMINS [Concomitant]
     Indication: SUPPLEMENTATION THERAPY
  4. BIOTIN [Concomitant]
     Indication: SUPPLEMENTATION THERAPY
  5. VITAMIN C [Concomitant]
     Indication: SUPPLEMENTATION THERAPY

REACTIONS (2)
  - Malaise [Unknown]
  - Menstruation irregular [Recovered/Resolved]
